FAERS Safety Report 9263260 (Version 1)
Quarter: 2013Q1

REPORT INFORMATION
  Report Type: Spontaneous
  Country: US (occurrence: None)
  Receive Date: 20121212
  Receipt Date: 20121212
  Transmission Date: 20140127
  Serious: No
  Sender: FDA-Public Use
  Company Number: 1210USA013768

PATIENT
  Age: 63 Year
  Sex: Male

DRUGS (3)
  1. VICTRELIS [Suspect]
     Indication: HEPATITIS C
     Route: 048
     Dates: start: 20120724, end: 201210
  2. PEGINTRON [Suspect]
     Route: 058
  3. RIBAPAK [Suspect]
     Dosage: 600 MG IN AM AND 400 MG IN PM. ORAL
     Route: 048

REACTIONS (3)
  - Quality of life decreased [None]
  - Diabetes mellitus inadequate control [None]
  - Fatigue [None]
